FAERS Safety Report 7293495-X (Version None)
Quarter: 2011Q1

REPORT INFORMATION
  Report Type: 
  Country: None (occurrence: None)
  Receive Date: 20110215
  Receipt Date: 20110209
  Transmission Date: 20110831
  Serious: Yes (Other)
  Sender: FDA-Public Use
  Company Number: B0698287A

PATIENT
  Age: 57 Year
  Sex: Female
  Weight: 63 kg

DRUGS (3)
  1. LISINOPRIL [Concomitant]
  2. ACTIVELLE [Concomitant]
  3. ALLI [Suspect]
     Indication: WEIGHT LOSS DIET
     Dosage: 60MG THREE TIMES PER DAY
     Route: 065
     Dates: start: 20110118, end: 20110123

REACTIONS (7)
  - THROAT IRRITATION [None]
  - TONGUE DISORDER [None]
  - OFF LABEL USE [None]
  - ANORECTAL DISCOMFORT [None]
  - ORAL DISCOMFORT [None]
  - GLOSSODYNIA [None]
  - VULVOVAGINAL PAIN [None]
